FAERS Safety Report 11813517 (Version 4)
Quarter: 2016Q2

REPORT INFORMATION
  Report Type: Spontaneous
  Country: US (occurrence: US)
  Receive Date: 20151209
  Receipt Date: 20160418
  Transmission Date: 20160815
  Serious: Yes (Other)
  Sender: FDA-Public Use
  Company Number: US-BAYER-2015-483809

PATIENT
  Age: 30 Year
  Sex: Female

DRUGS (1)
  1. MIRENA [Suspect]
     Active Substance: LEVONORGESTREL
     Indication: CONTRACEPTION
     Dosage: 20 MCG/24HR, CONT
     Route: 015
     Dates: start: 2012, end: 20151201

REACTIONS (5)
  - Menorrhagia [Not Recovered/Not Resolved]
  - Hypomenorrhoea [None]
  - Procedural haemorrhage [None]
  - Acne [Unknown]
  - Menstrual disorder [None]

NARRATIVE: CASE EVENT DATE: 2014
